FAERS Safety Report 4675326-7 (Version None)
Quarter: 2005Q2

REPORT INFORMATION
  Report Type: 
  Country: None (occurrence: None)
  Receive Date: 20050527
  Receipt Date: 20050515
  Transmission Date: 20051028
  Serious: Yes (Death)
  Sender: FDA-Public Use
  Company Number: IN-KINGPHARMUSA00001-K200500653

PATIENT
  Age: 24 Year
  Sex: Female

DRUGS (2)
  1. EPINEPHRINE [Suspect]
     Indication: RESUSCITATION
     Dosage: THREE ROUNDS
     Route: 042
  2. HARTMANN'S SOLUTION [Concomitant]
     Indication: RESUSCITATION
     Route: 042

REACTIONS (6)
  - CEREBRAL INFARCTION [None]
  - EXTENSOR PLANTAR RESPONSE [None]
  - HYPERREFLEXIA [None]
  - INCORRECT ROUTE OF DRUG ADMINISTRATION [None]
  - ISCHAEMIC CEREBRAL INFARCTION [None]
  - VASOCONSTRICTION [None]
